FAERS Safety Report 12575792 (Version 2)
Quarter: 2016Q3

REPORT INFORMATION
  Report Type: Spontaneous
  Country: US (occurrence: US)
  Receive Date: 20160720
  Receipt Date: 20160823
  Transmission Date: 20161109
  Serious: No
  Sender: FDA-Public Use
  Company Number: US-PFIZER INC-2016315156

PATIENT
  Age: 50 Year
  Sex: Female
  Weight: 116.5 kg

DRUGS (2)
  1. CORTEF [Suspect]
     Active Substance: HYDROCORTISONE
     Dosage: 5 MG, UNK
  2. NATURE^S THROID [Concomitant]
     Indication: THYROID DISORDER
     Dosage: UNK, 1X/DAY (3 GRAINS A DAY)

REACTIONS (17)
  - Poor quality sleep [Recovered/Resolved]
  - Head discomfort [Recovered/Resolved]
  - Weight increased [Recovering/Resolving]
  - Paraesthesia oral [Recovered/Resolved]
  - Serum serotonin decreased [Recovered/Resolved]
  - Endocrine disorder [Recovered/Resolved]
  - Psychomotor hyperactivity [Recovered/Resolved]
  - Body temperature decreased [Recovered/Resolved]
  - Product quality issue [Unknown]
  - Breast pain [Recovered/Resolved]
  - Homicidal ideation [Recovered/Resolved]
  - Irritability [Unknown]
  - Constipation [Recovered/Resolved]
  - Poor quality drug administered [Unknown]
  - Breast discomfort [Recovered/Resolved]
  - Breast swelling [Recovered/Resolved]
  - Swelling [Recovered/Resolved]
